FAERS Safety Report 16094934 (Version 1)
Quarter: 2019Q1

REPORT INFORMATION
  Report Type: Spontaneous
  Country: US (occurrence: US)
  Receive Date: 20190218
  Receipt Date: 20190218
  Transmission Date: 20190418
  Serious: No
  Sender: FDA-Public Use
  Company Number: None

PATIENT
  Age: 65 Year
  Sex: Female

DRUGS (2)
  1. OCALIVA [Suspect]
     Active Substance: OBETICHOLIC ACID
     Indication: PRIMARY BILIARY CHOLANGITIS
     Route: 048
     Dates: start: 20180720
  2. OTEZLA [Concomitant]
     Active Substance: APREMILAST

REACTIONS (4)
  - Pulmonary congestion [None]
  - Cough [None]
  - Nasopharyngitis [None]
  - Rhinorrhoea [None]
